FAERS Safety Report 10283301 (Version 1)
Quarter: 2014Q3

REPORT INFORMATION
  Report Type: Spontaneous
  Country: US (occurrence: None)
  Receive Date: 20140703
  Receipt Date: 20140703
  Transmission Date: 20150326
  Serious: Yes (Hospitalization)
  Sender: FDA-Public Use
  Company Number: UNT-2014-002092

PATIENT
  Age: 47 Year
  Sex: Female

DRUGS (2)
  1. SLDENAFIL (SILDENAFIL) [Concomitant]
  2. REMODULIN [Suspect]
     Active Substance: TREPROSTINIL
     Indication: COR PULMONALE CHRONIC
     Route: 058
     Dates: start: 20131115

REACTIONS (1)
  - Fluid overload [None]
